FAERS Safety Report 5337267-1 (Version None)
Quarter: 2007Q2

REPORT INFORMATION
  Report Type: 
  Country: None (occurrence: None)
  Receive Date: 20070529
  Receipt Date: 20070518
  Transmission Date: 20071010
  Serious: Yes (Hospitalization)
  Sender: FDA-Public Use
  Company Number: B0471002A

PATIENT
  Age: 69 Year
  Sex: Male

DRUGS (2)
  1. HYCAMTIN [Suspect]
     Route: 042
     Dates: start: 20070501
  2. PRIMPERAN INJ [Concomitant]

REACTIONS (2)
  - CEREBELLAR SYNDROME [None]
  - CONFUSIONAL STATE [None]
